FAERS Safety Report 5664143-7 (Version None)
Quarter: 2008Q1

REPORT INFORMATION
  Report Type: 
  Country: None (occurrence: None)
  Receive Date: 20080312
  Receipt Date: 20080227
  Transmission Date: 20080703
  Serious: Yes (Hospitalization)
  Sender: FDA-Public Use
  Company Number: 236153K06USA

PATIENT
  Age: 60 Year
  Sex: Female
  Weight: 119.7 kg

DRUGS (23)
  1. REBIF [Suspect]
     Indication: MULTIPLE SCLEROSIS
     Dosage: 44 MCG, 3 IN 1 WEEKS, SUBCUTANEOUS
     Route: 058
     Dates: start: 20060118
  2. XANAX [Concomitant]
  3. AVAPRO [Concomitant]
  4. CLONAZEPAM [Concomitant]
  5. DILAUDID [Concomitant]
  6. ASPIRIN [Concomitant]
  7. ELAVIL [Concomitant]
  8. FENTANYL [Concomitant]
  9. GABAPENTIN [Concomitant]
  10. LEXAPRO [Concomitant]
  11. LIPITOR [Concomitant]
  12. LYRICA [Concomitant]
  13. NOVOLIN 70/30 (INSULIN /00030501/) [Concomitant]
  14. PREDNISONE TAB [Concomitant]
  15. PREVACID [Concomitant]
  16. PROMETHAZINE [Concomitant]
  17. SINGULIAR (MONTELUKAST /01362601/) [Concomitant]
  18. SKELAXIN [Concomitant]
  19. SPIRIVA [Concomitant]
  20. ASMANEX TWISTHALER [Concomitant]
  21. THEO-DUR [Concomitant]
  22. TUSSI (TUSSI-12) [Concomitant]
  23. XOPENEX [Concomitant]

REACTIONS (11)
  - BACK PAIN [None]
  - BLOOD GLUCOSE INCREASED [None]
  - BRONCHITIS [None]
  - CHRONIC OBSTRUCTIVE PULMONARY DISEASE [None]
  - CONDITION AGGRAVATED [None]
  - FALL [None]
  - HEART RATE INCREASED [None]
  - LOWER LIMB FRACTURE [None]
  - MALAISE [None]
  - NAUSEA [None]
  - PITTING OEDEMA [None]
